FAERS Safety Report 11828089 (Version 1)
Quarter: 2015Q4

REPORT INFORMATION
  Report Type: Spontaneous
  Country: US (occurrence: US)
  Receive Date: 20151211
  Receipt Date: 20151211
  Transmission Date: 20160305
  Serious: No
  Sender: FDA-Public Use
  Company Number: US-BAUSCH-BL-2015-002884

PATIENT
  Age: 66 Year
  Sex: Female

DRUGS (6)
  1. XENAZINE [Suspect]
     Active Substance: TETRABENAZINE
     Dosage: 12.5 MG TWICE DAILY
     Route: 048
  2. XENAZINE [Suspect]
     Active Substance: TETRABENAZINE
     Indication: HUNTINGTON^S DISEASE
     Dosage: 1 TABLET BY MOUTH IN THE MORNING AND AFTERNOON AND 2 TABLETS IN THE EVENING.
     Route: 048
     Dates: start: 20141130
  3. XENAZINE [Suspect]
     Active Substance: TETRABENAZINE
     Dosage: INCREASED THE DOSE TO 12.5 MG THREE TIMES DAILY
     Route: 048
  4. XENAZINE [Suspect]
     Active Substance: TETRABENAZINE
     Dosage: 25 MG IN THE EVENING
     Route: 048
  5. XENAZINE [Suspect]
     Active Substance: TETRABENAZINE
     Dosage: 12.5 MG IN THE MORNING
     Route: 048
  6. XENAZINE [Suspect]
     Active Substance: TETRABENAZINE
     Dosage: 12.6 MG IN THE AFTERNOON
     Route: 048

REACTIONS (4)
  - Drooling [Unknown]
  - Abnormal behaviour [Not Recovered/Not Resolved]
  - Drug ineffective [Not Recovered/Not Resolved]
  - Abnormal dreams [Not Recovered/Not Resolved]

NARRATIVE: CASE EVENT DATE: 20141125
